FAERS Safety Report 8664090 (Version 2)
Quarter: 2012Q4

REPORT INFORMATION
  Report Type: 
  Country: JP (occurrence: JP)
  Receive Date: 20120713
  Receipt Date: 20120829
  Transmission Date: 20130627
  Serious: Yes (Hospitalization)
  Sender: FDA-Public Use
  Company Number: JP-GLAXOSMITHKLINE-B0813773A

PATIENT
  Age: 47 Year
  Sex: Female
  Weight: 53 kg

DRUGS (13)
  1. ARIXTRA [Suspect]
     Indication: THROMBOSIS PROPHYLAXIS
     Dosage: 2.5MG Per day
     Route: 058
     Dates: start: 20120609, end: 20120611
  2. UNSPECIFIED INGREDIENT [Suspect]
     Indication: PYREXIA
     Dosage: 1G Per day
     Dates: start: 20120611, end: 20120611
  3. FERROMIA [Concomitant]
     Route: 048
  4. METHYCOBAL [Concomitant]
     Route: 048
  5. FOLIAMIN [Concomitant]
     Route: 048
  6. AMOBAN [Concomitant]
     Route: 048
  7. SENNOSIDE A + B CALCIUM [Concomitant]
     Route: 048
  8. MAGMITT [Concomitant]
     Route: 048
  9. CHINESE MEDICINE [Concomitant]
     Route: 048
  10. VOLTAREN [Concomitant]
     Route: 048
  11. VOLTAREN [Concomitant]
     Route: 054
  12. GASTER [Concomitant]
     Route: 042
  13. FLUMARIN [Concomitant]
     Route: 042

REACTIONS (5)
  - Rash [Recovered/Resolved]
  - Erythema [Recovered/Resolved]
  - Hepatic function abnormal [Recovered/Resolved]
  - Pyrexia [Recovered/Resolved]
  - Pruritus [Recovered/Resolved]
